FAERS Safety Report 7383237-1 (Version None)
Quarter: 2011Q1

REPORT INFORMATION
  Report Type: 
  Country: None (occurrence: None)
  Receive Date: 20110330
  Receipt Date: 20110315
  Transmission Date: 20110831
  Serious: Yes (Hospitalization, Other)
  Sender: FDA-Public Use
  Company Number: PHHY2011FR10214

PATIENT
  Sex: Female
  Weight: 55 kg

DRUGS (3)
  1. ACLASTA [Suspect]
     Indication: OSTEOPOROSIS POSTMENOPAUSAL
     Dosage: UNK
     Dates: start: 20110128
  2. UTROGESTAN [Concomitant]
     Indication: MENOPAUSE
     Dosage: 1 DF QD
     Dates: start: 20101208
  3. VIVELLE-DOT [Concomitant]
     Indication: MENOPAUSE
     Dosage: 1 DF QD
     Dates: start: 20101208

REACTIONS (7)
  - PYREXIA [None]
  - MUSCULOSKELETAL PAIN [None]
  - MIGRAINE [None]
  - JOINT SWELLING [None]
  - ARTHRALGIA [None]
  - INFLUENZA [None]
  - MYALGIA [None]
